FAERS Safety Report 8112873-X (Version None)
Quarter: 2012Q1

REPORT INFORMATION
  Report Type: 
  Country: None (occurrence: None)
  Receive Date: 20120131
  Receipt Date: 20120120
  Transmission Date: 20120608
  Serious: Yes (Other)
  Sender: FDA-Public Use
  Company Number: 2010MA003021

PATIENT
  Sex: Male
  Weight: 99.7913 kg

DRUGS (19)
  1. METHOTREXATE [Concomitant]
  2. SEROQUEL [Concomitant]
  3. VOLTAREN [Concomitant]
  4. KLONOPIN [Concomitant]
  5. HYDROCODONE BITARTRATE AND ACETAMINOPHEN [Concomitant]
  6. AMITRIPTYLINE HCL [Concomitant]
  7. CELEBREX [Concomitant]
  8. ETODOLAC [Concomitant]
  9. METOCLOPRAMIDE [Suspect]
     Indication: GASTROOESOPHAGEAL REFLUX DISEASE
     Dosage: 10 MG;QID;PO
     Route: 048
     Dates: start: 20030401, end: 20090601
  10. METOCLOPRAMIDE [Suspect]
     Indication: NAUSEA
     Dosage: 10 MG;QID;PO
     Route: 048
     Dates: start: 20030401, end: 20090601
  11. CRESTOR [Concomitant]
  12. LYRICA [Concomitant]
  13. ADVAIR DISKUS 100/50 [Concomitant]
  14. ONDANSETRON HCL [Concomitant]
  15. ATENOLOL [Concomitant]
  16. NEXIUM [Concomitant]
  17. FOLIC ACID [Concomitant]
  18. LISINOPRIL [Concomitant]
  19. PHENERGAN [Concomitant]

REACTIONS (8)
  - AKATHISIA [None]
  - ECONOMIC PROBLEM [None]
  - EMOTIONAL DISORDER [None]
  - TARDIVE DYSKINESIA [None]
  - EXTRAPYRAMIDAL DISORDER [None]
  - INJURY [None]
  - NAUSEA [None]
  - PROTRUSION TONGUE [None]
